FAERS Safety Report 20186542 (Version 5)
Quarter: 2022Q1

REPORT INFORMATION
  Report Type: Report from Study
  Country: CA (occurrence: CA)
  Receive Date: 20211215
  Receipt Date: 20220102
  Transmission Date: 20220423
  Serious: No
  Sender: FDA-Public Use
  Company Number: CA-BIOGEN-2021BI01054702

PATIENT
  Age: 56 Year
  Sex: Female

DRUGS (10)
  1. DALFAMPRIDINE [Suspect]
     Active Substance: DALFAMPRIDINE
     Indication: Multiple sclerosis
     Dosage: 1 FOR 12 HOURS,
     Route: 048
     Dates: start: 20210928, end: 20210930
  2. DALFAMPRIDINE [Suspect]
     Active Substance: DALFAMPRIDINE
     Dosage: TAKE 10 MG PO BID 1 DAY OUT OF TWO, THE OTHER DAY TAKE 10 MG 1 PER ONE DAY
     Route: 048
     Dates: start: 20211112
  3. DALFAMPRIDINE [Suspect]
     Active Substance: DALFAMPRIDINE
     Dosage: 10MG ORALLY ONCE A DAY (QD)
     Route: 048
     Dates: start: 20211012, end: 20211112
  4. DALFAMPRIDINE [Suspect]
     Active Substance: DALFAMPRIDINE
     Dosage: 2021-11-12 TO PRESENT?10 MG ORALLY QD EVERY OTHER DAY AND BID THE OTHER DAYS
     Route: 048
     Dates: start: 20211112
  5. DALFAMPRIDINE [Suspect]
     Active Substance: DALFAMPRIDINE
     Dosage: 2021-NOV TO PRESENT?10 MG ORALLY BID
     Route: 048
     Dates: start: 202111
  6. DALFAMPRIDINE [Suspect]
     Active Substance: DALFAMPRIDINE
     Dosage: 10 MG 1 CO PO ONCE DAILY
     Route: 048
     Dates: start: 20211119, end: 20211207
  7. DALFAMPRIDINE [Suspect]
     Active Substance: DALFAMPRIDINE
     Route: 048
     Dates: start: 20211112, end: 20211115
  8. DALFAMPRIDINE [Suspect]
     Active Substance: DALFAMPRIDINE
     Dosage: 1 FOR 12 HOUR
     Route: 048
     Dates: start: 20211115, end: 20211118
  9. DALFAMPRIDINE [Suspect]
     Active Substance: DALFAMPRIDINE
     Route: 048
     Dates: start: 20210928, end: 20211223
  10. KEPPRA [Suspect]
     Active Substance: LEVETIRACETAM
     Indication: Product used for unknown indication
     Route: 065

REACTIONS (31)
  - Contraindicated product administered [Not Recovered/Not Resolved]
  - Hot flush [Not Recovered/Not Resolved]
  - Abdominal pain [Not Recovered/Not Resolved]
  - Diarrhoea [Not Recovered/Not Resolved]
  - Abdominal pain upper [Not Recovered/Not Resolved]
  - Flatulence [Unknown]
  - Feeling hot [Unknown]
  - Head discomfort [Recovered/Resolved]
  - Muscle spasms [Not Recovered/Not Resolved]
  - Musculoskeletal stiffness [Not Recovered/Not Resolved]
  - Chills [Unknown]
  - Drug hypersensitivity [Not Recovered/Not Resolved]
  - Peroneal nerve palsy [Not Recovered/Not Resolved]
  - Hypothermia [Not Recovered/Not Resolved]
  - Hyperhidrosis [Recovered/Resolved]
  - Faecal volume increased [Not Recovered/Not Resolved]
  - Drug intolerance [Unknown]
  - Blood pressure abnormal [Unknown]
  - Drug ineffective [Not Recovered/Not Resolved]
  - Faeces soft [Not Recovered/Not Resolved]
  - Syncope [Not Recovered/Not Resolved]
  - Fatigue [Not Recovered/Not Resolved]
  - Nasopharyngitis [Unknown]
  - Asthenia [Recovered/Resolved]
  - Dizziness [Not Recovered/Not Resolved]
  - Insomnia [Not Recovered/Not Resolved]
  - Headache [Not Recovered/Not Resolved]
  - Tremor [Unknown]
  - Nausea [Not Recovered/Not Resolved]
  - Vomiting [Not Recovered/Not Resolved]
  - Gait disturbance [Not Recovered/Not Resolved]

NARRATIVE: CASE EVENT DATE: 20210928
